FAERS Safety Report 6439984-9 (Version None)
Quarter: 2009Q4

REPORT INFORMATION
  Report Type: 
  Country: None (occurrence: None)
  Receive Date: 20091112
  Receipt Date: 20091112
  Transmission Date: 20100525
  Serious: Yes (Other)
  Sender: FDA-Public Use
  Company Number: None

PATIENT
  Age: 3 Year
  Sex: Female
  Weight: 13.6079 kg

DRUGS (1)
  1. TAMIFLU [Suspect]
     Indication: H1N1 INFLUENZA
     Dosage: 2 MLS 2X/DAY PO
     Route: 048
     Dates: start: 20091016, end: 20091018

REACTIONS (7)
  - DISORIENTATION [None]
  - FATIGUE [None]
  - FEAR [None]
  - LIMB DISCOMFORT [None]
  - LOSS OF CONSCIOUSNESS [None]
  - MONOPLEGIA [None]
  - MUSCLE SPASTICITY [None]
